FAERS Safety Report 13737764 (Version 1)
Quarter: 2017Q3

REPORT INFORMATION
  Report Type: Spontaneous
  Country: US (occurrence: US)
  Receive Date: 20170710
  Receipt Date: 20170710
  Transmission Date: 20171127
  Serious: Yes (Other)
  Sender: FDA-Public Use
  Company Number: US-SAOL THERAPEUTICS-2016SAO00325

PATIENT
  Sex: Male

DRUGS (2)
  1. LIORESAL [Suspect]
     Active Substance: BACLOFEN
     Indication: PAIN
  2. LIORESAL [Suspect]
     Active Substance: BACLOFEN
     Indication: MUSCLE SPASTICITY
     Dosage: 80.0 ?G, \DAY
     Route: 037

REACTIONS (4)
  - Muscle spasticity [Recovered/Resolved]
  - Pruritus [Recovered/Resolved]
  - Withdrawal syndrome [Unknown]
  - Device infusion issue [Unknown]
